FAERS Safety Report 6139958-1 (Version None)
Quarter: 2009Q1

REPORT INFORMATION
  Report Type: 
  Country: None (occurrence: None)
  Receive Date: 20090324
  Receipt Date: 20090316
  Transmission Date: 20090719
  Serious: Yes (Death)
  Sender: FDA-Public Use
  Company Number: GXKR2009GB03362

PATIENT
  Sex: Female

DRUGS (2)
  1. METFORMIN HCL [Suspect]
     Dosage: ORAL
     Route: 048
  2. SOLIAN (AMISULPRIDE) ORAL SOLUTION [Suspect]
     Dosage: 500 MG, BID, ORAL
     Route: 048

REACTIONS (4)
  - DRUG TOXICITY [None]
  - OVERDOSE [None]
  - RENAL IMPAIRMENT [None]
  - SUDDEN DEATH [None]
